FAERS Safety Report 18398042 (Version 2)
Quarter: 2020Q4

REPORT INFORMATION
  Report Type: Spontaneous
  Country: US (occurrence: US)
  Receive Date: 20201019
  Receipt Date: 20201019
  Transmission Date: 20210114
  Serious: Yes (Death)
  Sender: FDA-Public Use
  Company Number: US-PFIZER INC-2020402626

PATIENT
  Age: 84 Year
  Sex: Male
  Weight: 83.46 kg

DRUGS (1)
  1. VYNDAQEL [Suspect]
     Active Substance: TAFAMIDIS MEGLUMINE
     Indication: CARDIAC AMYLOIDOSIS
     Dosage: 4 DF, DAILY
     Route: 048
     Dates: start: 2020

REACTIONS (1)
  - Cardiac failure congestive [Fatal]
